FAERS Safety Report 8818793 (Version 1)
Quarter: 2012Q4

REPORT INFORMATION
  Report Type: 
  Country: US (occurrence: US)
  Receive Date: 20121001
  Receipt Date: 20121001
  Transmission Date: 20130627
  Serious: Yes (Other)
  Sender: FDA-Public Use
  Company Number: US-ROCHE-1130020

PATIENT
  Sex: Female

DRUGS (2)
  1. HERCEPTIN [Suspect]
     Indication: BREAST CANCER STAGE II
     Dosage: loading dose
     Route: 065
     Dates: start: 199905
  2. HERCEPTIN [Suspect]
     Dosage: maintenance dose
     Route: 065

REACTIONS (5)
  - Haemorrhage [Unknown]
  - Subclavian vein thrombosis [Unknown]
  - Neck mass [Recovering/Resolving]
  - Weight decreased [Unknown]
  - Anal fissure [Unknown]
